FAERS Safety Report 8409041 (Version 4)
Quarter: 2013Q1

REPORT INFORMATION
  Report Type: Spontaneous
  Country: FR (occurrence: FR)
  Receive Date: 20120216
  Receipt Date: 20130109
  Transmission Date: 20140127
  Serious: Yes (Hospitalization, Other)
  Sender: FDA-Public Use
  Company Number: PHHY2012FR007505

PATIENT
  Sex: Female

DRUGS (9)
  1. FEMARA [Suspect]
     Indication: BREAST CANCER
     Dosage: 1 DF DAILY
     Route: 048
     Dates: start: 20111230, end: 20120104
  2. STILNOX [Suspect]
     Dosage: 1 DF, DAILY
     Route: 048
     Dates: start: 20120108
  3. FUMAFER [Concomitant]
     Dosage: 1 DF, DAILY
  4. VITAMIN B12 [Concomitant]
     Dosage: 1 VIAL PER WEEK
  5. DAFALGAN [Concomitant]
  6. GLUCOPHAGE [Concomitant]
     Dosage: 1 DF, DAILY
  7. LEVOTHYROX [Concomitant]
     Dosage: 62.5 MG, UNK
  8. PRAVASTATINE [Concomitant]
     Dosage: 1 DF,DAILY
  9. ATACAND [Concomitant]
     Dosage: 1 DF, DAILY

REACTIONS (8)
  - Diarrhoea [Unknown]
  - Headache [Unknown]
  - Asthenia [Unknown]
  - Palpitations [Unknown]
  - Gait disturbance [Unknown]
  - Myalgia [Recovered/Resolved]
  - Tendon pain [Unknown]
  - Arthralgia [Unknown]
